FAERS Safety Report 6833667-9 (Version None)
Quarter: 2010Q3

REPORT INFORMATION
  Report Type: 
  Country: None (occurrence: None)
  Receive Date: 20100712
  Receipt Date: 20070329
  Transmission Date: 20110219
  Serious: No
  Sender: FDA-Public Use
  Company Number: US-PFIZER INC-2007026831

PATIENT
  Age: 50 Year
  Sex: Male
  Weight: 95.25 kg

DRUGS (6)
  1. CHANTIX [Suspect]
     Indication: SMOKING CESSATION THERAPY
     Route: 048
     Dates: start: 20070328
  2. COMMIT [Suspect]
     Indication: SMOKING CESSATION THERAPY
  3. VITAMINS [Concomitant]
  4. ALL OTHER THERAPEUTIC PRODUCTS [Concomitant]
  5. CHOLESTEROL- AND TRIGLYCERIDE REDUCERS [Concomitant]
     Indication: BLOOD CHOLESTEROL
  6. ALL OTHER THERAPEUTIC PRODUCTS [Concomitant]

REACTIONS (3)
  - ACCIDENTAL EXPOSURE [None]
  - CONSTIPATION [None]
  - NAUSEA [None]
